FAERS Safety Report 17247689 (Version 1)
Quarter: 2020Q1

REPORT INFORMATION
  Report Type: Spontaneous
  Country: FR (occurrence: FR)
  Receive Date: 20200108
  Receipt Date: 20200108
  Transmission Date: 20200409
  Serious: Yes (Hospitalization)
  Sender: FDA-Public Use
  Company Number: FR-BAUSCH-BL-2019-066887

PATIENT
  Age: 39 Year
  Sex: Female

DRUGS (2)
  1. IMOVANE [Suspect]
     Active Substance: ZOPICLONE
     Indication: INTENTIONAL PRODUCT MISUSE
     Dosage: 6 TABLETS PER DAY IN 3 DOSES
     Route: 065
  2. DIAZEPAM. [Suspect]
     Active Substance: DIAZEPAM
     Indication: INTENTIONAL PRODUCT MISUSE
     Dosage: 60 MG PER DAY IN 3 DOSES
     Route: 065

REACTIONS (4)
  - Obstructive airways disorder [Recovering/Resolving]
  - Depressed level of consciousness [Recovered/Resolved]
  - Lung disorder [Recovering/Resolving]
  - Drug dependence [Not Recovered/Not Resolved]

NARRATIVE: CASE EVENT DATE: 2019
